FAERS Safety Report 7154803-3 (Version None)
Quarter: 2010Q4

REPORT INFORMATION
  Report Type: 
  Country: None (occurrence: None)
  Receive Date: 20101214
  Receipt Date: 20091109
  Transmission Date: 20110411
  Serious: Yes (Other)
  Sender: FDA-Public Use
  Company Number: US-AMGEN-QUU341097

PATIENT

DRUGS (14)
  1. ENBREL [Suspect]
     Indication: RHEUMATOID ARTHRITIS
     Dosage: 50 MG, QWK
     Route: 058
     Dates: start: 19980101, end: 20090330
  2. PREDNISONE [Concomitant]
     Dosage: UNK UNK, UNK
     Dates: start: 20040604
  3. ALLOPURINOL [Concomitant]
     Dosage: UNK UNK, UNK
     Dates: start: 20081015
  4. COLCHICINE [Concomitant]
     Dosage: UNK UNK, UNK
     Dates: start: 20080818
  5. BENAZEPRIL HYDROCHLORIDE [Concomitant]
     Dosage: UNK UNK, UNK
     Dates: start: 20020101, end: 20070409
  6. ESTROGENS [Concomitant]
  7. PANTOPRAZOLE SODIUM [Concomitant]
     Dosage: UNK UNK, UNK
     Dates: start: 20030707, end: 20041001
  8. ROSUVASTATIN CALCIUM [Concomitant]
     Dosage: UNK UNK, UNK
     Dates: start: 20090301
  9. ESOMEPRAZOLE MAGNESIUM [Concomitant]
     Dosage: UNK UNK, UNK
     Dates: start: 20060116
  10. BUDESONIDE/FORMOTEROL FUMARATE [Concomitant]
     Dosage: UNK UNK, UNK
     Dates: start: 20071115
  11. MONTELUKAST [Concomitant]
     Dosage: UNK UNK, UNK
     Dates: start: 20060101
  12. NEBIVOLOL HCL [Concomitant]
     Dosage: UNK UNK, UNK
     Dates: start: 20080401
  13. TRIAMTERENE AND HYDROCHLOROTHIAZIDE [Concomitant]
     Dosage: UNK UNK, UNK
     Dates: start: 20080401
  14. AMLODIPINE [Concomitant]
     Dosage: 5 MG, UNK
     Dates: start: 20090401

REACTIONS (1)
  - MALIGNANT MELANOMA [None]
